FAERS Safety Report 18309210 (Version 1)
Quarter: 2020Q3

REPORT INFORMATION
  Report Type: Spontaneous
  Country: CN (occurrence: CN)
  Receive Date: 20200924
  Receipt Date: 20200924
  Transmission Date: 20201103
  Serious: Yes (Other)
  Sender: FDA-Public Use
  Company Number: CN-PFIZER INC-2020367173

PATIENT
  Age: 35 Year
  Sex: Female
  Weight: 57 kg

DRUGS (2)
  1. CYTOTEC [Suspect]
     Active Substance: MISOPROSTOL
     Indication: ABORTION INDUCED
     Dosage: 600 UG, 1X/DAY
     Route: 048
     Dates: start: 20200919, end: 20200919
  2. CYTOTEC [Suspect]
     Active Substance: MISOPROSTOL
     Indication: DECREASED EMBRYO VIABILITY

REACTIONS (7)
  - Speech disorder [Recovering/Resolving]
  - Chills [Recovering/Resolving]
  - Product use in unapproved indication [Unknown]
  - Tremor [Recovering/Resolving]
  - Off label use [Unknown]
  - Pulmonary arterial hypertension [Recovering/Resolving]
  - Muscle spasms [Recovering/Resolving]

NARRATIVE: CASE EVENT DATE: 20200919
